FAERS Safety Report 6141971-5 (Version None)
Quarter: 2009Q2

REPORT INFORMATION
  Report Type: 
  Country: None (occurrence: None)
  Receive Date: 20090402
  Receipt Date: 20051222
  Transmission Date: 20091009
  Serious: Yes (Hospitalization, Other)
  Sender: FDA-Public Use
  Company Number: HU-PFIZER INC-2005008009

PATIENT

DRUGS (4)
  1. CELECOXIB [Suspect]
     Indication: POLYP COLORECTAL
     Dosage: 400 MG, 1X/DAY
     Route: 048
     Dates: start: 20011119, end: 20041116
  2. PENTOXIFYLLINE [Concomitant]
     Route: 048
     Dates: start: 19930101
  3. NITROGLYCERIN [Concomitant]
     Route: 048
     Dates: start: 19980101
  4. VINPOCETINE [Concomitant]
     Route: 048
     Dates: start: 19980101

REACTIONS (2)
  - COLON CANCER [None]
  - METASTASES TO LIVER [None]
